FAERS Safety Report 9114627 (Version 3)
Quarter: 2013Q2

REPORT INFORMATION
  Report Type: Spontaneous
  Country: US (occurrence: US)
  Receive Date: 20130208
  Receipt Date: 20130501
  Transmission Date: 20140414
  Serious: Yes (Death, Other)
  Sender: FDA-Public Use
  Company Number: US-ASTRAZENECA-2013SE07204

PATIENT
  Age: 72 Year
  Sex: Female

DRUGS (6)
  1. SYMBICORT PMDI [Suspect]
     Dosage: 160/4.5 MCG WITH UNKNOWN FREQUENCY
     Route: 055
     Dates: start: 20130122
  2. SYMBICORT PMDI [Suspect]
     Dosage: LOWER DOSAGE WITH UNKNOWN FREQUENCY
     Route: 055
  3. NASONEX [Concomitant]
  4. SINGULAIR [Concomitant]
  5. ADVAIR [Concomitant]
  6. TOLERA [Concomitant]

REACTIONS (5)
  - Death [Fatal]
  - Neoplasm malignant [Unknown]
  - Dyspnoea [Unknown]
  - Dysphonia [Unknown]
  - Intentional drug misuse [Unknown]
